FAERS Safety Report 10676034 (Version 2)
Quarter: 2014Q4

REPORT INFORMATION
  Report Type: Spontaneous
  Country: JP (occurrence: JP)
  Receive Date: 20141225
  Receipt Date: 20141225
  Transmission Date: 20150529
  Serious: Yes (Hospitalization)
  Sender: FDA-Public Use
  Company Number: PHHY2013JP092311

PATIENT
  Age: 39 Year
  Sex: Male
  Weight: 47 kg

DRUGS (21)
  1. EPADEL-S [Concomitant]
     Active Substance: ETHYL ICOSAPENTATE\ICOSAPENT
     Indication: HYPERLIPIDAEMIA
     Dosage: 1200 MG, UNK
     Route: 048
     Dates: start: 20051205
  2. BEPRICOR [Concomitant]
     Active Substance: BEPRIDIL
     Dosage: 100 MG, UNK
     Route: 048
  3. CERTICAN [Suspect]
     Active Substance: EVEROLIMUS
     Dosage: 1.5 MG, QD
     Route: 048
     Dates: start: 20091213, end: 20101129
  4. BAKTAR [Concomitant]
     Active Substance: SULFAMETHOXAZOLE\TRIMETHOPRIM
     Dosage: 4 DF, UNK
     Route: 048
  5. NEORAL [Concomitant]
     Active Substance: CYCLOSPORINE
     Indication: HEART TRANSPLANT
     Dosage: 225 MG, UNK
     Route: 065
     Dates: start: 19971028
  6. NEORAL [Concomitant]
     Active Substance: CYCLOSPORINE
     Dosage: 200 MG, UNK
     Route: 065
  7. NEORAL [Concomitant]
     Active Substance: CYCLOSPORINE
     Dosage: 200 MG, UNK
     Route: 065
  8. PREDONINE [Concomitant]
     Active Substance: PREDNISOLONE\PREDNISOLONE ACETATE\PREDNISOLONE SODIUM SUCCINATE
     Dosage: 100 MG, UNK
     Route: 065
  9. CERTICAN [Suspect]
     Active Substance: EVEROLIMUS
     Dosage: 1.5 MG, QD
     Route: 048
     Dates: start: 20081213
  10. CELLCEPT [Concomitant]
     Active Substance: MYCOPHENOLATE MOFETIL\MYCOPHENOLATE MOFETIL HYDROCHLORIDE
     Dosage: 3000 MG, UNK
     Route: 065
  11. BAKTAR [Concomitant]
     Active Substance: SULFAMETHOXAZOLE\TRIMETHOPRIM
     Dosage: 1 DF, UNK
     Route: 048
  12. EPADEL-S [Concomitant]
     Active Substance: ETHYL ICOSAPENTATE\ICOSAPENT
     Dosage: 600 MG, UNK
     Route: 048
  13. PREDONINE [Concomitant]
     Active Substance: PREDNISOLONE\PREDNISOLONE ACETATE\PREDNISOLONE SODIUM SUCCINATE
     Indication: HEART TRANSPLANT
     Dosage: 5 MG, UNK
     Route: 065
     Dates: start: 20021023
  14. CELLCEPT [Concomitant]
     Active Substance: MYCOPHENOLATE MOFETIL\MYCOPHENOLATE MOFETIL HYDROCHLORIDE
     Dosage: 2500 MG, UNK
     Route: 065
  15. BAKTAR [Concomitant]
     Active Substance: SULFAMETHOXAZOLE\TRIMETHOPRIM
     Indication: ANTIFUNGAL PROPHYLAXIS
     Dosage: 1 DF, UNK
     Route: 048
     Dates: start: 20021103
  16. BEPRICOR [Concomitant]
     Active Substance: BEPRIDIL
     Indication: ARRHYTHMIA
     Dosage: 100 MG, UNK
     Route: 048
     Dates: start: 20070402
  17. NEORAL [Concomitant]
     Active Substance: CYCLOSPORINE
     Dosage: 225 MG, UNK
     Route: 065
  18. CELLCEPT [Concomitant]
     Active Substance: MYCOPHENOLATE MOFETIL\MYCOPHENOLATE MOFETIL HYDROCHLORIDE
     Indication: HEART TRANSPLANT
     Dosage: 2500 MG, UNK
     Route: 065
     Dates: start: 20001113
  19. PREDONINE [Concomitant]
     Active Substance: PREDNISOLONE\PREDNISOLONE ACETATE\PREDNISOLONE SODIUM SUCCINATE
     Dosage: 5 MG, UNK
     Route: 065
  20. CELLCEPT [Concomitant]
     Active Substance: MYCOPHENOLATE MOFETIL\MYCOPHENOLATE MOFETIL HYDROCHLORIDE
     Dosage: 2000 MG, UNK
     Route: 065
  21. CERTICAN [Suspect]
     Active Substance: EVEROLIMUS
     Indication: HEART TRANSPLANT
     Dosage: 1.5 MG, QD
     Route: 048
     Dates: start: 20061129

REACTIONS (7)
  - Haemoglobin decreased [Unknown]
  - Oedema peripheral [Not Recovered/Not Resolved]
  - Blood cholesterol increased [Unknown]
  - Cardiac failure [Not Recovered/Not Resolved]
  - Chylothorax [Recovering/Resolving]
  - Dyspnoea [Unknown]
  - Pleural effusion [Recovering/Resolving]

NARRATIVE: CASE EVENT DATE: 200807
